FAERS Safety Report 9150419 (Version 1)
Quarter: 2013Q1

REPORT INFORMATION
  Report Type: Spontaneous
  Country: US (occurrence: US)
  Receive Date: 20130308
  Receipt Date: 20130308
  Transmission Date: 20140127
  Serious: No
  Sender: FDA-Public Use
  Company Number: US-GLAXOSMITHKLINE-A0986962A

PATIENT
  Age: 47 Year
  Sex: 0

DRUGS (2)
  1. NICORETTE MINT [Suspect]
     Indication: EX-TOBACCO USER
     Dates: start: 20120721, end: 20120725
  2. NICODERM CQ [Suspect]
     Indication: SMOKING CESSATION THERAPY
     Route: 062

REACTIONS (11)
  - Glossodynia [Not Recovered/Not Resolved]
  - Application site erythema [Not Recovered/Not Resolved]
  - Paraesthesia oral [Not Recovered/Not Resolved]
  - Glossodynia [Not Recovered/Not Resolved]
  - Glossitis [Not Recovered/Not Resolved]
  - Tongue blistering [Not Recovered/Not Resolved]
  - Oral mucosal blistering [Not Recovered/Not Resolved]
  - Overdose [Not Recovered/Not Resolved]
  - Dry mouth [Unknown]
  - Myalgia [Unknown]
  - Arthralgia [Unknown]
